FAERS Safety Report 10258173 (Version 2)
Quarter: 2014Q4

REPORT INFORMATION
  Report Type: Spontaneous
  Country: US (occurrence: None)
  Receive Date: 20140623
  Receipt Date: 20141222
  Transmission Date: 20150528
  Serious: Yes (Hospitalization)
  Sender: FDA-Public Use
  Company Number: UNT-2014-002252

PATIENT
  Age: 44 Year
  Sex: Male
  Weight: 122.4 kg

DRUGS (4)
  1. LETAIRIS [Concomitant]
     Active Substance: AMBRISENTAN
  2. BUMEX (BUMETANIDE) [Concomitant]
  3. ADCIRCA [Concomitant]
     Active Substance: TADALAFIL
  4. REMODULIN [Suspect]
     Active Substance: TREPROSTINIL
     Indication: COR PULMONALE CHRONIC
     Route: 058
     Dates: start: 20130601

REACTIONS (4)
  - Pneumonia [None]
  - Acute respiratory failure [None]
  - Pulmonary arterial hypertension [None]
  - Cardiac failure congestive [None]

NARRATIVE: CASE EVENT DATE: 20140523
